FAERS Safety Report 7020921-3 (Version None)
Quarter: 2010Q3

REPORT INFORMATION
  Report Type: 
  Country: None (occurrence: None)
  Receive Date: 20100929
  Receipt Date: 20100921
  Transmission Date: 20110219
  Serious: Yes (Life-Threatening, Other)
  Sender: FDA-Public Use
  Company Number: NL-GENZYME-CLOF-1001228

PATIENT
  Sex: Male
  Weight: 84 kg

DRUGS (3)
  1. EVOLTRA [Suspect]
     Indication: ACUTE LEUKAEMIA
     Dosage: 31 MG, QOD
     Route: 042
     Dates: start: 20100904, end: 20100912
  2. CYTARABINE [Suspect]
     Indication: ACUTE LEUKAEMIA
     Dosage: 200 MG, QD
     Route: 042
     Dates: start: 20100903, end: 20100912
  3. IDARUBICIN HCL [Suspect]
     Indication: ACUTE LEUKAEMIA
     Dosage: 21 MG, QOD
     Route: 042
     Dates: start: 20100903, end: 20100907

REACTIONS (7)
  - DELIRIUM [None]
  - DIARRHOEA [None]
  - FEBRILE NEUTROPENIA [None]
  - INFECTION [None]
  - METABOLIC ACIDOSIS [None]
  - PANCYTOPENIA [None]
  - RESPIRATORY FAILURE [None]
